FAERS Safety Report 4922043-1 (Version None)
Quarter: 2006Q1

REPORT INFORMATION
  Report Type: 
  Country: None (occurrence: None)
  Receive Date: 20060222
  Receipt Date: 20060222
  Transmission Date: 20060701
  Serious: Yes (Hospitalization)
  Sender: FDA-Public Use
  Company Number: None

PATIENT
  Age: 50 Year
  Sex: Male
  Weight: 77.1115 kg

DRUGS (7)
  1. PHENYTOIN [Suspect]
     Indication: CONVULSION
     Dosage: 100 MG PO TID
     Route: 048
  2. NEURONTIN [Concomitant]
  3. DIOVAN [Concomitant]
  4. HYDROCODONE [Concomitant]
  5. CARTIA XT [Concomitant]
  6. PREVACID [Concomitant]
  7. CRESTOR [Concomitant]

REACTIONS (9)
  - ASTHENIA [None]
  - CONDITION AGGRAVATED [None]
  - CONVULSION [None]
  - COORDINATION ABNORMAL [None]
  - DIFFICULTY IN WALKING [None]
  - DIZZINESS [None]
  - DRUG TOXICITY [None]
  - HEADACHE [None]
  - NYSTAGMUS [None]
